FAERS Safety Report 7075252-2 (Version None)
Quarter: 2010Q4

REPORT INFORMATION
  Report Type: 
  Country: None (occurrence: None)
  Receive Date: 20101030
  Receipt Date: 20100903
  Transmission Date: 20110411
  Serious: No
  Sender: FDA-Public Use
  Company Number: US-WYE-H16694010

PATIENT
  Age: 21 Year
  Sex: Male
  Weight: 135.29 kg

DRUGS (3)
  1. ALAVERT [Suspect]
     Indication: HYPERSENSITIVITY
     Route: 048
     Dates: start: 20100501
  2. METFORMIN [Concomitant]
  3. DEPAKOTE [Concomitant]

REACTIONS (1)
  - DRUG INEFFECTIVE [None]
